FAERS Safety Report 13933404 (Version 1)
Quarter: 2017Q3

REPORT INFORMATION
  Report Type: Report from Study
  Country: MX (occurrence: MX)
  Receive Date: 20170904
  Receipt Date: 20170904
  Transmission Date: 20171127
  Serious: Yes (Other)
  Sender: FDA-Public Use
  Company Number: PHHY2017MX115354

PATIENT
  Sex: Female
  Weight: 112 kg

DRUGS (10)
  1. TEGRETOL [Suspect]
     Active Substance: CARBAMAZEPINE
     Indication: BIPOLAR DISORDER
     Dosage: 3 DF (200 MG), QD
     Route: 065
     Dates: start: 1999
  2. KETLUR [Concomitant]
     Indication: PAIN
     Dosage: 10 MG, Q12H
     Route: 065
  3. TEGRETOL [Suspect]
     Active Substance: CARBAMAZEPINE
     Dosage: 1 DF (200 MG), Q8H
     Route: 048
     Dates: start: 2000
  4. IMPLICANE [Concomitant]
     Indication: DEPRESSION
     Dosage: 50 MG (DAILY AFTER BREAKFAST), QD
     Route: 065
  5. GALVUS MET [Suspect]
     Active Substance: METFORMIN HYDROCHLORIDE\VILDAGLIPTIN
     Indication: DIABETES MELLITUS
     Dosage: 1 DF, QD
     Route: 048
     Dates: start: 2007
  6. OMEPRAZOLE. [Concomitant]
     Active Substance: OMEPRAZOLE
     Indication: DYSPEPSIA
     Dosage: 20 MG (DAILY IN FASTING), QD
     Route: 065
  7. ULTIBRO BREEZHALER [Suspect]
     Active Substance: GLYCOPYRRONIUM\INDACATEROL
     Indication: CHRONIC OBSTRUCTIVE PULMONARY DISEASE
     Dosage: 1 DF, QD (IN THE MORNING)
     Route: 055
     Dates: start: 2006
  8. MIFLONIDE [Suspect]
     Active Substance: BUDESONIDE
     Indication: CHRONIC OBSTRUCTIVE PULMONARY DISEASE
     Dosage: 1 DF, QN
     Route: 055
     Dates: start: 2006
  9. TENORETIC [Concomitant]
     Active Substance: ATENOLOL\CHLORTHALIDONE
     Indication: BLOOD PRESSURE ABNORMAL
     Dosage: 1 DF, QD
     Route: 065
  10. KETOROLACO [Concomitant]
     Indication: PAIN
     Dosage: 10 MG, Q12H
     Route: 065

REACTIONS (4)
  - Benign ear neoplasm [Recovered/Resolved]
  - Diabetes mellitus [Recovering/Resolving]
  - Cholelithiasis [Recovered/Resolved]
  - Chronic obstructive pulmonary disease [Recovering/Resolving]

NARRATIVE: CASE EVENT DATE: 2006
